FAERS Safety Report 5975178-9 (Version None)
Quarter: 2008Q4

REPORT INFORMATION
  Report Type: 
  Country: None (occurrence: None)
  Receive Date: 20081128
  Receipt Date: 20081124
  Transmission Date: 20090506
  Serious: Yes (Hospitalization)
  Sender: FDA-Public Use
  Company Number: 20113

PATIENT
  Age: 74 Year
  Sex: Female

DRUGS (2)
  1. CYTARABINE [Suspect]
     Indication: ACUTE MYELOID LEUKAEMIA
     Dosage: 30.4 MG QD SC
     Route: 058
     Dates: start: 20080602, end: 20080611
  2. CYTARABINE [Suspect]
     Indication: ACUTE MYELOID LEUKAEMIA
     Dosage: 30.8 MG QD SC
     Route: 058
     Dates: start: 20080630, end: 20080709

REACTIONS (4)
  - DEEP VEIN THROMBOSIS [None]
  - FEBRILE NEUTROPENIA [None]
  - MUCOSAL DISCOLOURATION [None]
  - PALLOR [None]
